FAERS Safety Report 23999873 (Version 1)
Quarter: 2024Q2

REPORT INFORMATION
  Report Type: Spontaneous
  Country: US (occurrence: None)
  Receive Date: 20240620
  Receipt Date: 20240620
  Transmission Date: 20240715
  Serious: Yes (Disabling, Other)
  Sender: FDA-Public Use
  Company Number: None

PATIENT
  Age: 53 Year
  Sex: Female
  Weight: 52.2 kg

DRUGS (9)
  1. VEOZAH [Suspect]
     Active Substance: FEZOLINETANT
     Indication: Hot flush
     Dosage: 1 TABLET DAILY ORAL
     Route: 048
     Dates: start: 20240201, end: 20240510
  2. PROGESTERONE [Concomitant]
     Active Substance: PROGESTERONE
  3. GABAPENTIN [Concomitant]
     Active Substance: GABAPENTIN
  4. MULTI [Concomitant]
  5. TOCOPHEROL [Concomitant]
     Active Substance: TOCOPHEROL
  6. CALCIUM [Concomitant]
     Active Substance: CALCIUM
  7. MAGNESIUM [Concomitant]
     Active Substance: MAGNESIUM
  8. C [Concomitant]
  9. D [Concomitant]

REACTIONS (1)
  - Perinatal depression [None]

NARRATIVE: CASE EVENT DATE: 20240510
